FAERS Safety Report 8176679-8 (Version None)
Quarter: 2012Q1

REPORT INFORMATION
  Report Type: 
  Country: None (occurrence: None)
  Receive Date: 20120301
  Receipt Date: 20120222
  Transmission Date: 20120608
  Serious: Yes (Other)
  Sender: FDA-Public Use
  Company Number: US-SANOFI-AVENTIS-2012SA012145

PATIENT
  Age: 65 Year
  Sex: Female

DRUGS (2)
  1. LOVENOX [Suspect]
     Indication: PULMONARY EMBOLISM
     Route: 058
     Dates: start: 20111201
  2. LOVENOX [Suspect]
     Route: 058

REACTIONS (4)
  - BLOOD BLISTER [None]
  - SURGERY [None]
  - CONTUSION [None]
  - HAEMORRHAGE [None]
